FAERS Safety Report 8929179 (Version 1)
Quarter: 2012Q4

REPORT INFORMATION
  Report Type: 
  Country: FR (occurrence: FR)
  Receive Date: 20121127
  Receipt Date: 20121127
  Transmission Date: 20130627
  Serious: Yes (Other)
  Sender: FDA-Public Use
  Company Number: PHHY2012FR107174

PATIENT
  Age: 11 Year
  Sex: Female

DRUGS (9)
  1. VINCRISTINE [Suspect]
     Indication: T-CELL TYPE ACUTE LEUKAEMIA
  2. PIPERACILLIN+TAZOBACTAM [Interacting]
     Indication: FEBRILE NEUTROPENIA
  3. PREDNISONE [Concomitant]
     Indication: T-CELL TYPE ACUTE LEUKAEMIA
  4. DAUNORUBICINE [Concomitant]
     Indication: T-CELL TYPE ACUTE LEUKAEMIA
  5. CYCLOPHOSPHAMIDE [Concomitant]
     Indication: T-CELL TYPE ACUTE LEUKAEMIA
  6. L-ASPARAGINASE [Concomitant]
     Indication: T-CELL TYPE ACUTE LEUKAEMIA
  7. ANTIEMETICS [Concomitant]
  8. OMEPRAZOLE [Concomitant]
  9. HYDROXYZINE [Concomitant]

REACTIONS (9)
  - Neurotoxicity [Unknown]
  - Neuralgia [Unknown]
  - Pain in jaw [Unknown]
  - Cholestasis [Unknown]
  - Abdominal pain [Unknown]
  - Constipation [Unknown]
  - Ileus paralytic [Unknown]
  - Intestinal obstruction [Unknown]
  - Drug interaction [Unknown]
